FAERS Safety Report 14821427 (Version 17)
Quarter: 2019Q3

REPORT INFORMATION
  Report Type: Spontaneous
  Country: PT (occurrence: PT)
  Receive Date: 20180427
  Receipt Date: 20190801
  Transmission Date: 20191004
  Serious: Yes (Other)
  Sender: FDA-Public Use
  Company Number: PT-AUROBINDO-AUR-APL-2018-009525

PATIENT

DRUGS (6)
  1. IBUPROFEN. [Suspect]
     Active Substance: IBUPROFEN
     Indication: PRODUCT USED FOR UNKNOWN INDICATION
     Dosage: UNK, START PERIOD: 2 (HOURS)
     Route: 048
  2. KETOROLAC INJECTABLE SOLUTION [Suspect]
     Active Substance: KETOROLAC TROMETHAMINE
     Indication: PRODUCT USED FOR UNKNOWN INDICATION
     Dosage: UNK START PERIOD: 2 (HOURS)
     Route: 048
  3. LISALGIL [Suspect]
     Active Substance: METAMIZOLE SODIUM
     Indication: PRODUCT USED FOR UNKNOWN INDICATION
     Dosage: UNK, START PERIOD: 2 (HOURS)
     Route: 048
  4. CETOROLAC [Suspect]
     Active Substance: KETOROLAC TROMETHAMINE
     Indication: PRODUCT USED FOR UNKNOWN INDICATION
     Dosage: UNK
     Route: 048
  5. NOLOTIL [METAMIZOLE MAGNESIUM] [Suspect]
     Active Substance: METAMIZOLE MAGNESIUM
     Indication: PRODUCT USED FOR UNKNOWN INDICATION
     Dosage: UNK START PERIOD: 2 (HOURS)
     Route: 048
  6. DICLOFENAC [Suspect]
     Active Substance: DICLOFENAC
     Indication: PRODUCT USED FOR UNKNOWN INDICATION
     Dosage: START PERIOD: 2 (HOURS)
     Route: 048

REACTIONS (2)
  - Angioedema [Recovered/Resolved]
  - Drug intolerance [Recovered/Resolved]
